FAERS Safety Report 5715772-3 (Version None)
Quarter: 2008Q2

REPORT INFORMATION
  Report Type: 
  Country: None (occurrence: None)
  Receive Date: 20080422
  Receipt Date: 20080407
  Transmission Date: 20081010
  Serious: Yes (Other)
  Sender: FDA-Public Use
  Company Number: 2008S1005810

PATIENT
  Sex: Male

DRUGS (4)
  1. DURAZANIL 6 (BROMAZEPAM) [Suspect]
     Indication: INTENTIONAL OVERDOSE
     Dosage: 120 MG; ONCE; ORAL
     Route: 048
  2. CITALOPRAM HYDROBROMIDE [Suspect]
     Indication: INTENTIONAL OVERDOSE
     Dosage: 300 MG; ONCE; ORAL
     Route: 048
  3. IBUPROFEN [Suspect]
     Indication: INTENTIONAL OVERDOSE
     Dosage: 8000 MG; ONCE; ORAL
     Route: 048
  4. ETHANOL (ETHANOL) [Suspect]
     Indication: INTENTIONAL OVERDOSE
     Dosage: ; ORAL
     Route: 048

REACTIONS (4)
  - BRADYCARDIA [None]
  - HYPOTENSION [None]
  - MULTIPLE DRUG OVERDOSE INTENTIONAL [None]
  - SUICIDE ATTEMPT [None]
